FAERS Safety Report 16840603 (Version 2)
Quarter: 2019Q4

REPORT INFORMATION
  Report Type: Spontaneous
  Country: US (occurrence: US)
  Receive Date: 20190923
  Receipt Date: 20191003
  Transmission Date: 20200122
  Serious: Yes (Death, Hospitalization, Other)
  Sender: FDA-Public Use
  Company Number: US-ALLERGAN-1938093US

PATIENT
  Sex: Male

DRUGS (5)
  1. NORCO [Suspect]
     Active Substance: ACETAMINOPHEN\HYDROCODONE BITARTRATE
     Indication: LUNG NEOPLASM MALIGNANT
     Dosage: 1 DF, PRN
     Dates: start: 2015
  2. LASIX [Concomitant]
     Active Substance: FUROSEMIDE
     Indication: RENAL IMPAIRMENT
     Dosage: 40 MG, QAM
  3. PERCOCET                           /00446701/ [Interacting]
     Active Substance: ACETAMINOPHEN\OXYCODONE HYDROCHLORIDE\OXYCODONE TEREPHTHALATE
     Indication: MUSCULOSKELETAL PAIN
     Dosage: UNK
     Dates: start: 20161008
  4. INDOMETHACIN                       /00003801/ [Concomitant]
     Active Substance: INDOMETHACIN
     Indication: MUSCULOSKELETAL PAIN
     Dosage: 25 MG, QHS
     Route: 048
  5. XANAX [Interacting]
     Active Substance: ALPRAZOLAM
     Indication: INSOMNIA
     Dosage: 1 MG, BY MOUTH AS NEEDED AT BED TIME
     Route: 048
     Dates: start: 2016, end: 201610

REACTIONS (9)
  - Overdose [Fatal]
  - Pallor [Unknown]
  - Blood pressure decreased [Fatal]
  - Drug interaction [Unknown]
  - Myocardial infarction [Fatal]
  - Brain cancer metastatic [Unknown]
  - Blood glucose increased [Fatal]
  - Fall [Unknown]
  - Miosis [Unknown]

NARRATIVE: CASE EVENT DATE: 2016
